FAERS Safety Report 9631728 (Version 1)
Quarter: 2013Q4

REPORT INFORMATION
  Report Type: Report from Study
  Country: RS (occurrence: RS)
  Receive Date: 20131018
  Receipt Date: 20131018
  Transmission Date: 20140711
  Serious: Yes (Death)
  Sender: FDA-Public Use
  Company Number: RS-PFIZER INC-2013295012

PATIENT
  Age: 25 Year
  Sex: Male

DRUGS (7)
  1. HALOPERIDOL [Suspect]
     Indication: PSYCHOTIC DISORDER
     Dosage: 20 MG, DAILY
     Route: 030
  2. HALOPERIDOL [Suspect]
     Dosage: 4 MG, DAILY
     Route: 048
  3. CEFTRIAXONE [Concomitant]
     Indication: ANTIBIOTIC THERAPY
     Dosage: 2 G, DAILY
     Route: 042
  4. DIAZEPAM [Concomitant]
     Indication: ANXIOLYTIC THERAPY
     Dosage: 20 MG, DAILY
     Route: 030
  5. CARBAMAZEPINE [Concomitant]
     Indication: PSYCHOTIC DISORDER
     Dosage: 600 MG, DAILY
     Route: 048
  6. CARBAMAZEPINE [Concomitant]
     Dosage: 300 MG, DAILY
     Route: 048
  7. CARBAMAZEPINE [Concomitant]
     Dosage: 200 MG, DAILY
     Route: 048

REACTIONS (1)
  - Pulmonary embolism [Fatal]
